FAERS Safety Report 9075029 (Version 1)
Quarter: 2013Q1

REPORT INFORMATION
  Report Type: Spontaneous
  Country: US (occurrence: US)
  Receive Date: 20130129
  Receipt Date: 20130129
  Transmission Date: 20140127
  Serious: No
  Sender: FDA-Public Use
  Company Number: US-BAYER-2013-009228

PATIENT
  Age: 31 Year
  Sex: Female
  Weight: 70.3 kg

DRUGS (1)
  1. BETASERON [Suspect]
     Dosage: 0.25 MG, QOD
     Route: 058
     Dates: start: 20080122

REACTIONS (3)
  - Headache [Unknown]
  - Pain [Unknown]
  - Fatigue [Unknown]
